FAERS Safety Report 6153996-4 (Version None)
Quarter: 2009Q2

REPORT INFORMATION
  Report Type: 
  Country: None (occurrence: None)
  Receive Date: 20090414
  Receipt Date: 20090405
  Transmission Date: 20091009
  Serious: Yes (Hospitalization, Other)
  Sender: FDA-Public Use
  Company Number: PHHY2009FR13216

PATIENT
  Age: 54 Year
  Sex: Female

DRUGS (3)
  1. TEGRETOL [Suspect]
     Indication: EPILEPSY
     Dosage: 400 MG, BID
  2. DI-ANTALVIC [Interacting]
     Indication: PAIN
     Dosage: 2 TABLETS
     Dates: start: 20090403
  3. DI-ANTALVIC [Interacting]
     Dosage: 2 TABLETS
     Dates: start: 20090404

REACTIONS (3)
  - BREAST OPERATION [None]
  - DRUG INTERACTION [None]
  - MALAISE [None]
